FAERS Safety Report 22526963 (Version 1)
Quarter: 2023Q2

REPORT INFORMATION
  Report Type: Spontaneous
  Country: KR (occurrence: KR)
  Receive Date: 20230606
  Receipt Date: 20230606
  Transmission Date: 20230722
  Serious: Yes (Hospitalization)
  Sender: FDA-Public Use
  Company Number: KR-ORGANON-O2306KOR000219

PATIENT
  Sex: Female
  Weight: 50 kg

DRUGS (5)
  1. HYDROCHLOROTHIAZIDE\LOSARTAN POTASSIUM [Suspect]
     Active Substance: HYDROCHLOROTHIAZIDE\LOSARTAN POTASSIUM
     Indication: Hypertension
     Dosage: UNK, QD
     Route: 048
     Dates: start: 20191114
  2. APIXABAN [Suspect]
     Active Substance: APIXABAN
     Indication: Atrial fibrillation
     Dosage: 2.5 MILLIGRAM, 0.5 DAY (Q12H)
     Route: 048
     Dates: start: 20210401
  3. DONEPEZIL HYDROCHLORIDE [Concomitant]
     Active Substance: DONEPEZIL HYDROCHLORIDE
     Indication: Lacunar infarction
     Dosage: 10 MILLIGRAM, QD
     Route: 048
     Dates: start: 20191127
  4. CHOLINE ALFOSCERATE [Concomitant]
     Active Substance: CHOLINE ALFOSCERATE
     Indication: Lacunar infarction
     Dosage: 1 FORMULATION, 0.5 DAY (Q12H)
     Route: 048
     Dates: start: 20191127
  5. MEMANTINE HYDROCHLORIDE [Concomitant]
     Active Substance: MEMANTINE HYDROCHLORIDE
     Indication: Lacunar infarction
     Dosage: 10 MILLIGRAM, 0.5 DAY (Q12H)
     Route: 048
     Dates: start: 20200327

REACTIONS (1)
  - Cardiac failure [Recovered/Resolved]

NARRATIVE: CASE EVENT DATE: 20210505
